FAERS Safety Report 18355914 (Version 2)
Quarter: 2020Q4

REPORT INFORMATION
  Report Type: Report from Study
  Country: CA (occurrence: CA)
  Receive Date: 20201007
  Receipt Date: 20201013
  Transmission Date: 20210114
  Serious: Yes (Hospitalization, Other)
  Sender: FDA-Public Use
  Company Number: CA-PFIZER INC-2020379099

PATIENT
  Age: 53 Year
  Sex: Male

DRUGS (2)
  1. BEVACIZUMAB. [Suspect]
     Active Substance: BEVACIZUMAB
     Indication: GLIOBLASTOMA MULTIFORME
     Dosage: 850 MG
     Route: 042
  2. BEVACIZUMAB. [Suspect]
     Active Substance: BEVACIZUMAB
     Indication: GLIOBLASTOMA MULTIFORME
     Dosage: UNK
     Route: 065

REACTIONS (10)
  - Deep vein thrombosis [Unknown]
  - Fatigue [Unknown]
  - Malaise [Unknown]
  - Depression [Unknown]
  - Weight abnormal [Unknown]
  - Pyrexia [Unknown]
  - Decreased appetite [Unknown]
  - Anxiety [Unknown]
  - Dyspnoea [Unknown]
  - Somnolence [Unknown]
